FAERS Safety Report 24670067 (Version 3)
Quarter: 2025Q1

REPORT INFORMATION
  Report Type: Spontaneous
  Country: US (occurrence: US)
  Receive Date: 20241127
  Receipt Date: 20250303
  Transmission Date: 20250409
  Serious: Yes (Hospitalization, Other)
  Sender: SANOFI AVENTIS
  Company Number: US-SA-2024SA344505

PATIENT
  Age: 48 Year
  Sex: Male
  Weight: 106.59 kg

DRUGS (21)
  1. DUPIXENT [Suspect]
     Active Substance: DUPILUMAB
     Indication: Dermatitis atopic
     Dosage: 300 MG, QOW
     Route: 058
     Dates: start: 201905, end: 2024
  2. DUPIXENT [Suspect]
     Active Substance: DUPILUMAB
     Indication: Dermatitis atopic
  3. REPATHA [Concomitant]
     Active Substance: EVOLOCUMAB
  4. ALLOPURINOL [Concomitant]
     Active Substance: ALLOPURINOL
  5. ELIQUIS [Concomitant]
     Active Substance: APIXABAN
  6. LINEZOLID [Concomitant]
     Active Substance: LINEZOLID
  7. LOPERAMIDE [Concomitant]
     Active Substance: LOPERAMIDE
  8. TRIAMCINOLONE ACETONIDE [Concomitant]
     Active Substance: TRIAMCINOLONE ACETONIDE
  9. LOSARTAN POTASSIUM [Concomitant]
     Active Substance: LOSARTAN POTASSIUM
  10. TRAZODONE HCL [Concomitant]
     Active Substance: TRAZODONE HYDROCHLORIDE
  11. CYCLOBENZAPRINE HYDROCHLORIDE [Concomitant]
     Active Substance: CYCLOBENZAPRINE HYDROCHLORIDE
  12. METRONIDAZOLE [Concomitant]
     Active Substance: METRONIDAZOLE
  13. COLCHICINE [Concomitant]
     Active Substance: COLCHICINE
  14. GABAPENTIN [Concomitant]
     Active Substance: GABAPENTIN
  15. ROSUVASTATIN CALCIUM [Concomitant]
     Active Substance: ROSUVASTATIN CALCIUM
  16. FAMOTIDINE [Concomitant]
     Active Substance: FAMOTIDINE
  17. MINERALS\VITAMINS [Concomitant]
     Active Substance: MINERALS\VITAMINS
  18. OXYCODONE HYDROCHLORIDE [Concomitant]
     Active Substance: OXYCODONE HYDROCHLORIDE
  19. PANTOPRAZOLE SODIUM [Concomitant]
     Active Substance: PANTOPRAZOLE SODIUM
  20. XYZAL [Concomitant]
     Active Substance: LEVOCETIRIZINE DIHYDROCHLORIDE
  21. FLONASE ALLERGY RELIEF [Concomitant]
     Active Substance: FLUTICASONE PROPIONATE

REACTIONS (3)
  - Accident [Unknown]
  - Femur fracture [Unknown]
  - Tissue injury [Unknown]

NARRATIVE: CASE EVENT DATE: 20241108
